FAERS Safety Report 8270208-6 (Version None)
Quarter: 2012Q2

REPORT INFORMATION
  Report Type: 
  Country: None (occurrence: None)
  Receive Date: 20120410
  Receipt Date: 20120330
  Transmission Date: 20120825
  Serious: Yes (Congenital Anomaly)
  Sender: FDA-Public Use
  Company Number: JP-SANOFI-AVENTIS-2012SA017872

PATIENT
  Age: 1 Day
  Sex: Male
  Weight: 3.38 kg

DRUGS (7)
  1. ZOLPIDEM [Suspect]
     Indication: FOETAL EXPOSURE DURING PREGNANCY
     Route: 064
     Dates: start: 20110101, end: 20111217
  2. KAMIKIHITOU [Concomitant]
     Dates: start: 20110101
  3. LORAZEPAM [Concomitant]
     Dates: start: 20110101
  4. DEPAS [Concomitant]
     Dates: start: 20110101, end: 20120129
  5. ROHYPNOL [Concomitant]
     Dates: start: 20110101
  6. SEROQUEL [Suspect]
     Indication: FOETAL EXPOSURE DURING PREGNANCY
     Route: 064
     Dates: start: 20110101, end: 20111217
  7. BLONANSERIN [Concomitant]
     Route: 048
     Dates: start: 20110101

REACTIONS (2)
  - SOMNOLENCE [None]
  - FEEDING DISORDER NEONATAL [None]
